FAERS Safety Report 15794733 (Version 1)
Quarter: 2019Q1

REPORT INFORMATION
  Report Type: Spontaneous
  Country: US (occurrence: US)
  Receive Date: 20190107
  Receipt Date: 20190107
  Transmission Date: 20190417
  Serious: No
  Sender: FDA-Public Use
  Company Number: US-BAYER-2019-003608

PATIENT
  Age: 49 Year
  Sex: Female
  Weight: 104.31 kg

DRUGS (1)
  1. GADAVIST [Suspect]
     Active Substance: GADOBUTROL
     Indication: BIOPSY BREAST
     Dosage: UNK, ONCE
     Route: 042
     Dates: start: 20181217, end: 20181217

REACTIONS (5)
  - Paraesthesia [Recovering/Resolving]
  - Tongue discomfort [Unknown]
  - Dysgeusia [Unknown]
  - Dizziness [Unknown]
  - Headache [Not Recovered/Not Resolved]

NARRATIVE: CASE EVENT DATE: 20181217
